FAERS Safety Report 11324291 (Version 1)
Quarter: 2015Q3

REPORT INFORMATION
  Report Type: Spontaneous
  Country: FR (occurrence: FR)
  Receive Date: 20150730
  Receipt Date: 20150730
  Transmission Date: 20151125
  Serious: Yes (Other)
  Sender: FDA-Public Use
  Company Number: FR-TEVA-581090ISR

PATIENT
  Age: 55 Year
  Sex: Female

DRUGS (2)
  1. ACITRETIN. [Suspect]
     Active Substance: ACITRETIN
     Indication: KERATOSIS FOLLICULAR
     Dosage: LONG-TERM
     Route: 048
  2. ADAPALENE. [Suspect]
     Active Substance: ADAPALENE
     Indication: KERATOSIS FOLLICULAR
     Dosage: 0.1%, DAILY APPLICATION, FIFTEEN TUBES OF 30G APPLIED ON APPROXIMATELY 15% OF BODY SURFACE
     Route: 061
     Dates: start: 201201

REACTIONS (1)
  - Hepatitis acute [Recovering/Resolving]

NARRATIVE: CASE EVENT DATE: 2012
